FAERS Safety Report 15744486 (Version 1)
Quarter: 2018Q4

REPORT INFORMATION
  Report Type: Report from Study
  Country: CA (occurrence: CA)
  Receive Date: 20181220
  Receipt Date: 20181220
  Transmission Date: 20190205
  Serious: Yes (Hospitalization)
  Sender: FDA-Public Use
  Company Number: CA-BRISTOL-MYERS SQUIBB COMPANY-BMS-2018-018188

PATIENT
  Age: 38 Year
  Sex: Female

DRUGS (2)
  1. METHOTREXATE. [Concomitant]
     Active Substance: METHOTREXATE
     Indication: PRODUCT USED FOR UNKNOWN INDICATION
     Dosage: UNK
     Route: 065
  2. ABATACEPT [Suspect]
     Active Substance: ABATACEPT
     Indication: ARTHRITIS
     Dosage: 1000 MG, Q4WK
     Route: 042
     Dates: start: 20180209

REACTIONS (11)
  - Nausea [Recovered/Resolved]
  - Fatigue [Recovered/Resolved]
  - Urinary tract infection [Recovering/Resolving]
  - Vomiting [Unknown]
  - Infection [Unknown]
  - Pyrexia [Unknown]
  - Agitation [Unknown]
  - Wound [Unknown]
  - Cystitis [Unknown]
  - Headache [Recovered/Resolved]
  - Nasopharyngitis [Recovering/Resolving]

NARRATIVE: CASE EVENT DATE: 20180212
